FAERS Safety Report 8592898-0 (Version None)
Quarter: 2012Q3

REPORT INFORMATION
  Report Type: 
  Country: None (occurrence: None)
  Receive Date: 20120814
  Receipt Date: 20120724
  Transmission Date: 20120928
  Serious: No
  Sender: FDA-Public Use
  Company Number: US-009507513-1208USA005517

PATIENT

DRUGS (3)
  1. JANUVIA [Suspect]
     Indication: DIABETES MELLITUS
  2. METFORMIN HYDROCHLORIDE [Suspect]
  3. VICTOZA [Concomitant]

REACTIONS (1)
  - ABDOMINAL DISCOMFORT [None]
